FAERS Safety Report 25588308 (Version 1)
Quarter: 2025Q3

REPORT INFORMATION
  Report Type: Report from Study
  Country: CO (occurrence: CO)
  Receive Date: 20250722
  Receipt Date: 20250722
  Transmission Date: 20251021
  Serious: Yes (Hospitalization)
  Sender: JOHNSON AND JOHNSON
  Company Number: CO-JNJFOC-20250723629

PATIENT
  Age: 68 Year
  Sex: Female
  Weight: 66 kg

DRUGS (2)
  1. SIMPONI [Suspect]
     Active Substance: GOLIMUMAB
     Indication: Rheumatoid arthritis
     Route: 058
     Dates: start: 20150106
  2. COVID-19 VACCINE [Concomitant]
     Indication: Product used for unknown indication
     Dates: start: 202105

REACTIONS (1)
  - Hysterectomy [Recovering/Resolving]

NARRATIVE: CASE EVENT DATE: 20250714
